FAERS Safety Report 16255510 (Version 1)
Quarter: 2019Q2

REPORT INFORMATION
  Report Type: Spontaneous
  Country: GB (occurrence: NG)
  Receive Date: 20190430
  Receipt Date: 20190430
  Transmission Date: 20190711
  Serious: Yes (Other)
  Sender: FDA-Public Use
  Company Number: GB-009507513-1904NGA011981

PATIENT
  Age: 60 Year
  Sex: Female

DRUGS (1)
  1. CANCIDAS [Suspect]
     Active Substance: CASPOFUNGIN ACETATE
     Indication: FUNGAL INFECTION
     Dosage: UNK

REACTIONS (3)
  - Product availability issue [Unknown]
  - Urinary tract infection [Unknown]
  - Urinary tract infection fungal [Unknown]

NARRATIVE: CASE EVENT DATE: 201807
